APPROVED DRUG PRODUCT: AMOXIL
Active Ingredient: AMOXICILLIN
Strength: 200MG
Dosage Form/Route: TABLET, CHEWABLE;ORAL
Application: N050761 | Product #001
Applicant: US ANTIBIOTICS LLC
Approved: Apr 15, 1999 | RLD: No | RS: No | Type: DISCN